FAERS Safety Report 7103498-3 (Version None)
Quarter: 2010Q4

REPORT INFORMATION
  Report Type: 
  Country: None (occurrence: None)
  Receive Date: 20101115
  Receipt Date: 20101110
  Transmission Date: 20110411
  Serious: Yes (Death)
  Sender: FDA-Public Use
  Company Number: GB-GILEAD-2010-0030915

PATIENT
  Age: 41 Year
  Sex: Male
  Weight: 101 kg

DRUGS (5)
  1. TRUVADA [Suspect]
     Indication: HIV INFECTION
     Dates: start: 20060801, end: 20090301
  2. SUSTIVA [Suspect]
     Indication: HIV INFECTION
     Route: 048
     Dates: start: 20031201, end: 20090301
  3. DAPSONE [Concomitant]
  4. ERYTHROMYCIN [Concomitant]
  5. ZOPICLONE [Concomitant]

REACTIONS (1)
  - COMPLETED SUICIDE [None]
